FAERS Safety Report 4554653-8 (Version None)
Quarter: 2005Q1

REPORT INFORMATION
  Report Type: 
  Country: None (occurrence: None)
  Receive Date: 20050114
  Receipt Date: 20040504
  Transmission Date: 20050727
  Serious: Yes (Hospitalization)
  Sender: FDA-Public Use
  Company Number: GXKR2004DE00559

PATIENT
  Age: 72 Year
  Sex: Male

DRUGS (4)
  1. SPIRONOLACTONE [Suspect]
     Dosage: 50 MG
  2. LISINOPRIL [Suspect]
     Dosage: 5 MG
  3. DIGOXIN [Concomitant]
  4. FUROSEMIDE [Concomitant]

REACTIONS (6)
  - ASTHENIA [None]
  - BLOOD CREATININE INCREASED [None]
  - DIALYSIS [None]
  - DRUG INTERACTION [None]
  - ELECTROCARDIOGRAM QRS COMPLEX ABNORMAL [None]
  - HYPERKALAEMIA [None]
